FAERS Safety Report 4577161-7 (Version None)
Quarter: 2005Q1

REPORT INFORMATION
  Report Type: 
  Country: None (occurrence: None)
  Receive Date: 20050210
  Receipt Date: 20050128
  Transmission Date: 20050727
  Serious: Yes (Hospitalization)
  Sender: FDA-Public Use
  Company Number: PHNU2005DE00744

PATIENT
  Sex: Male

DRUGS (1)
  1. TEGRETAL RETARD [Suspect]

REACTIONS (2)
  - PULMONARY FIBROSIS [None]
  - RESPIRATORY DISORDER [None]
